FAERS Safety Report 4695909-8 (Version None)
Quarter: 2005Q2

REPORT INFORMATION
  Report Type: 
  Country: None (occurrence: None)
  Receive Date: 20050608
  Receipt Date: 20040518
  Transmission Date: 20051028
  Serious: Yes (Other)
  Sender: FDA-Public Use
  Company Number: 368103

PATIENT

DRUGS (3)
  1. ACCUTANE [Suspect]
     Dates: start: 20030315, end: 20030808
  2. DEPO-PROVERA SUSPENSION/INJ [Concomitant]
  3. BIRTH CONTROL PILLS (ORAL CONTRACEPTIVE NOS) [Concomitant]

REACTIONS (3)
  - DRUG EXPOSURE DURING PREGNANCY [None]
  - NO ADVERSE EFFECT [None]
  - PREGNANCY [None]
